FAERS Safety Report 17543698 (Version 1)
Quarter: 2020Q1

REPORT INFORMATION
  Report Type: Report from Study
  Country: None (occurrence: US)
  Receive Date: 20200316
  Receipt Date: 20200316
  Transmission Date: 20200409
  Serious: Yes (Hospitalization, Other)
  Sender: FDA-Public Use
  Company Number: US-ABBVIE-20K-163-3317915-00

PATIENT
  Age: 25 Year
  Sex: Male

DRUGS (1)
  1. CREON [Suspect]
     Active Substance: PANCRELIPASE AMYLASE\PANCRELIPASE LIPASE\PANCRELIPASE PROTEASE
     Indication: PANCREATIC FAILURE
     Dosage: 2 CAPSULES PER MEAL AND 1 CAPSULE PER SNACK, DEPENDS ON NUMBER OF MEALS
     Route: 048
     Dates: start: 20190507

REACTIONS (3)
  - Gastrointestinal scarring [Recovering/Resolving]
  - Volvulus [Recovering/Resolving]
  - Abdominal pain [Recovering/Resolving]

NARRATIVE: CASE EVENT DATE: 201905
